FAERS Safety Report 11623954 (Version 2)
Quarter: 2016Q1

REPORT INFORMATION
  Report Type: Spontaneous
  Country: US (occurrence: US)
  Receive Date: 20151013
  Receipt Date: 20160121
  Transmission Date: 20160525
  Serious: Yes (Other)
  Sender: FDA-Public Use
  Company Number: US-JNJFOC-20150922994

PATIENT
  Sex: Female
  Weight: 90.72 kg

DRUGS (2)
  1. INVEGA SUSTENNA [Suspect]
     Active Substance: PALIPERIDONE PALMITATE
     Indication: BORDERLINE PERSONALITY DISORDER
     Route: 030
     Dates: start: 20111219, end: 20150713
  2. INVEGA SUSTENNA [Suspect]
     Active Substance: PALIPERIDONE PALMITATE
     Indication: BIPOLAR II DISORDER
     Route: 030
     Dates: start: 20111219, end: 20150713

REACTIONS (3)
  - Injection site haemorrhage [Recovered/Resolved]
  - Injection site rash [Recovered/Resolved]
  - White blood cell count increased [Recovered/Resolved]

NARRATIVE: CASE EVENT DATE: 20150713
